FAERS Safety Report 11965228 (Version 1)
Quarter: 2016Q1

REPORT INFORMATION
  Report Type: Spontaneous
  Country: GB (occurrence: GB)
  Receive Date: 20160127
  Receipt Date: 20160127
  Transmission Date: 20160526
  Serious: Yes (Life-Threatening)
  Sender: FDA-Public Use
  Company Number: GB-ASTRAZENECA-2016SE05798

PATIENT
  Age: 65 Year
  Sex: Male
  Weight: 120 kg

DRUGS (12)
  1. AMITRIPTYLINE [Concomitant]
     Active Substance: AMITRIPTYLINE
  2. GLICLAZIDE [Concomitant]
     Active Substance: GLICLAZIDE
  3. HUMULIN NOS [Concomitant]
     Active Substance: INSULIN HUMAN
  4. METFORMIN [Concomitant]
     Active Substance: METFORMIN HYDROCHLORIDE
  5. ROSUVASTATIN [Concomitant]
     Active Substance: ROSUVASTATIN
  6. RAMIPRIL. [Concomitant]
     Active Substance: RAMIPRIL
  7. ASPIRIN. [Concomitant]
     Active Substance: ASPIRIN
  8. COCODAMOL [Concomitant]
     Active Substance: ACETAMINOPHEN\CODEINE PHOSPHATE
  9. DAPAGLIFLOZIN [Suspect]
     Active Substance: DAPAGLIFLOZIN
     Indication: TYPE 2 DIABETES MELLITUS
     Route: 048
     Dates: start: 20151130, end: 20151206
  10. FUROSEMIDE. [Concomitant]
     Active Substance: FUROSEMIDE
  11. RANITIDINE [Concomitant]
     Active Substance: RANITIDINE\RANITIDINE HYDROCHLORIDE
  12. SITAGLIPTIN [Concomitant]
     Active Substance: SITAGLIPTIN

REACTIONS (8)
  - Blood pressure decreased [Unknown]
  - Oxygen saturation decreased [Unknown]
  - Acute kidney injury [Recovering/Resolving]
  - Malaise [Unknown]
  - Feeding disorder [Unknown]
  - Pyelonephritis [Recovering/Resolving]
  - Dysuria [Unknown]
  - Body temperature increased [Unknown]

NARRATIVE: CASE EVENT DATE: 20151203
